FAERS Safety Report 6139936-2 (Version None)
Quarter: 2009Q2

REPORT INFORMATION
  Report Type: 
  Country: None (occurrence: None)
  Receive Date: 20090401
  Receipt Date: 20090325
  Transmission Date: 20091009
  Serious: Yes (Hospitalization, Other)
  Sender: FDA-Public Use
  Company Number: US-ELI_LILLY_AND_COMPANY-US200903006534

PATIENT
  Sex: Male

DRUGS (1)
  1. HUMALOG [Suspect]
     Dates: start: 20080201

REACTIONS (2)
  - BLOOD GLUCOSE DECREASED [None]
  - RENAL FAILURE [None]
